FAERS Safety Report 5289804-3 (Version None)
Quarter: 2007Q2

REPORT INFORMATION
  Report Type: 
  Country: None (occurrence: None)
  Receive Date: 20070406
  Receipt Date: 20070404
  Transmission Date: 20071010
  Serious: Yes (Other)
  Sender: FDA-Public Use
  Company Number: GB-BOEHRINGER INGELHEIM PHARMACEUTICALS, INC.-2007-UK-01113UK

PATIENT
  Sex: Female

DRUGS (3)
  1. VIRAMUNE [Suspect]
     Indication: HIV INFECTION
     Route: 048
  2. RETROVIR [Suspect]
     Indication: HIV INFECTION
     Route: 048
  3. VIDEX [Suspect]
     Indication: HIV INFECTION
     Route: 048

REACTIONS (1)
  - STILLBIRTH [None]
